FAERS Safety Report 6387214-9 (Version None)
Quarter: 2009Q4

REPORT INFORMATION
  Report Type: 
  Country: None (occurrence: None)
  Receive Date: 20091002
  Receipt Date: 20090924
  Transmission Date: 20100525
  Serious: Yes (Other)
  Sender: FDA-Public Use
  Company Number: FR-ABBOTT-09P-056-0599076-00

PATIENT
  Age: 46 Year
  Sex: Female

DRUGS (3)
  1. DEPAKENE [Suspect]
     Indication: BIPOLAR I DISORDER
     Route: 048
  2. TERALITHE [Interacting]
     Indication: BIPOLAR I DISORDER
     Route: 048
  3. ORLISTAT [Interacting]
     Indication: OBESITY
     Dates: start: 20090728, end: 20090731

REACTIONS (3)
  - DEPRESSION [None]
  - DRUG INTERACTION [None]
  - SUICIDAL IDEATION [None]
